FAERS Safety Report 9181911 (Version 1)
Quarter: 2013Q1

REPORT INFORMATION
  Report Type: Report from Study
  Country: CA (occurrence: CA)
  Receive Date: 20130322
  Receipt Date: 20130322
  Transmission Date: 20140127
  Serious: Yes (Hospitalization)
  Sender: FDA-Public Use
  Company Number: CA-JNJFOC-20130308321

PATIENT
  Age: 25 Year
  Sex: Female
  Weight: 42.5 kg

DRUGS (2)
  1. REMICADE [Suspect]
     Indication: PRODUCT USED FOR UNKNOWN INDICATION
     Route: 042
     Dates: start: 20090127
  2. METHOTREXATE [Concomitant]
     Dosage: MG
     Route: 048

REACTIONS (1)
  - Colectomy total [Unknown]
